FAERS Safety Report 11358785 (Version 1)
Quarter: 2015Q3

REPORT INFORMATION
  Report Type: Spontaneous
  Country: US (occurrence: None)
  Receive Date: 20150716
  Receipt Date: 20150716
  Transmission Date: 20151125
  Serious: Yes (Other)
  Sender: FDA-Public Use
  Company Number: 2014PROUSA04212

PATIENT
  Age: 75 Year
  Sex: Male
  Weight: 51.2 kg

DRUGS (1)
  1. PROVENGE [Suspect]
     Active Substance: SIPULEUCEL-T
     Indication: PROSTATE CANCER METASTATIC
     Route: 042
     Dates: start: 20141120, end: 20141120

REACTIONS (1)
  - Anaemia [None]

NARRATIVE: CASE EVENT DATE: 20141212
